FAERS Safety Report 8893694 (Version 1)
Quarter: 2012Q4

REPORT INFORMATION
  Report Type: 
  Country: US (occurrence: US)
  Receive Date: 20121107
  Receipt Date: 20121107
  Transmission Date: 20130627
  Serious: No
  Sender: FDA-Public Use
  Company Number: US-AMGEN-USASP2011060501

PATIENT
  Sex: Female

DRUGS (16)
  1. ENBREL [Suspect]
     Indication: PRODUCT USED FOR UNKNOWN INDICATION
     Dosage: 50 mg, qwk
     Route: 058
  2. MIRAPEX [Concomitant]
     Dosage: 0.375 mg, UNK
  3. POTASSIUM [Concomitant]
     Dosage: 75 mg, UNK
  4. CYMBALTA [Concomitant]
     Dosage: 20 mg, UNK
  5. ADVAIR [Concomitant]
     Dosage: 100/50
  6. NEXIUM [Concomitant]
     Dosage: 20 mg, UNK
  7. SINGULAR [Concomitant]
     Dosage: 10 mg, UNK
  8. LEFLUNOMIDE [Concomitant]
     Dosage: 10 mg, UNK
  9. FLONASE [Concomitant]
     Dosage: 0.05 %, UNK
  10. TUMS [Concomitant]
     Dosage: 500 mg, UNK
  11. VITAMIN D [Concomitant]
     Dosage: 2000 unit, UNK
  12. METHOTREXATE [Concomitant]
     Dosage: 2.5 mg, UNK
  13. TENORETIC [Concomitant]
  14. GABAPENTIN [Concomitant]
     Dosage: 100 mg, UNK
  15. MULTIVITAMIN [Concomitant]
  16. CALCIUM [Concomitant]
     Dosage: UNK

REACTIONS (2)
  - Injection site pain [Unknown]
  - Sinusitis [Unknown]
